FAERS Safety Report 5328939-3 (Version None)
Quarter: 2007Q2

REPORT INFORMATION
  Report Type: 
  Country: None (occurrence: None)
  Receive Date: 20070518
  Receipt Date: 20070508
  Transmission Date: 20071010
  Serious: Yes (Other)
  Sender: FDA-Public Use
  Company Number: US-BRISTOL-MYERS SQUIBB COMPANY-13781901

PATIENT
  Age: 65 Year
  Sex: Male

DRUGS (7)
  1. EFAVIRENZ [Suspect]
  2. TENOFOVIR DISOPROXIL FUMARATE [Suspect]
  3. ABACAVIR SULFATE [Suspect]
  4. ALLOPURINOL [Suspect]
  5. FOLIC ACID [Concomitant]
  6. IRBESARTAN [Concomitant]
  7. VITAMIN B COMPLEX CAP [Concomitant]

REACTIONS (3)
  - ABASIA [None]
  - RENAL FAILURE ACUTE [None]
  - RHABDOMYOLYSIS [None]
